FAERS Safety Report 9119705 (Version 1)
Quarter: 2013Q1

REPORT INFORMATION
  Report Type: Spontaneous
  Country: DK (occurrence: None)
  Receive Date: 20130130
  Receipt Date: 20130130
  Transmission Date: 20140127
  Serious: Yes (Life-Threatening, Hospitalization)
  Sender: FDA-Public Use
  Company Number: 2013MA000775

PATIENT
  Age: 73 Year
  Sex: Male

DRUGS (16)
  1. BUTALBITAL, ASPIRIN AND CAFFEINE [Suspect]
     Route: 048
     Dates: start: 19980105, end: 20130106
  2. NAPROXEN [Suspect]
     Indication: OSTEOARTHRITIS
     Route: 048
     Dates: end: 20130106
  3. SIMVASTATIN [Concomitant]
  4. RAMIPRIL [Concomitant]
  5. TILDIEM LA [Concomitant]
  6. PANTOPRAZOLE [Concomitant]
  7. NICORANDIL [Concomitant]
  8. PANTOPRAZOLE [Concomitant]
  9. NICORANDIL [Concomitant]
  10. METFORMIN [Concomitant]
  11. ISOSORBIDE MONONITRATE [Concomitant]
  12. FUROSEMIDE [Concomitant]
  13. DICLOFENAC [Concomitant]
  14. GLYCERYL TRINITRATE [Concomitant]
  15. CO-CODAMOL [Concomitant]
  16. ANAESTHETICS NOS [Concomitant]

REACTIONS (4)
  - Gastrointestinal haemorrhage [None]
  - Renal failure acute [None]
  - Normochromic normocytic anaemia [None]
  - Gastritis erosive [None]
